FAERS Safety Report 22974768 (Version 4)
Quarter: 2025Q3

REPORT INFORMATION
  Report Type: Report from Study
  Country: CA (occurrence: CA)
  Receive Date: 20230923
  Receipt Date: 20250911
  Transmission Date: 20251020
  Serious: Yes (Other)
  Sender: TAKEDA
  Company Number: CA-TAKEDA-2023TUS090651

PATIENT
  Sex: Male

DRUGS (4)
  1. VEDOLIZUMAB [Suspect]
     Active Substance: VEDOLIZUMAB
     Indication: Colitis ulcerative
  2. VEDOLIZUMAB [Suspect]
     Active Substance: VEDOLIZUMAB
  3. VEDOLIZUMAB [Suspect]
     Active Substance: VEDOLIZUMAB
     Indication: Colitis ulcerative
     Dosage: 108 MILLIGRAM, Q2WEEKS
     Dates: start: 20230422
  4. MESALAMINE [Concomitant]
     Active Substance: MESALAMINE
     Dosage: 1600 MILLIGRAM, BID

REACTIONS (5)
  - Colitis ulcerative [Unknown]
  - Mucous stools [Unknown]
  - Social problem [Unknown]
  - Impaired work ability [Unknown]
  - Constipation [Unknown]
